FAERS Safety Report 9447560 (Version 1)
Quarter: 2013Q3

REPORT INFORMATION
  Report Type: Spontaneous
  Country: DE (occurrence: None)
  Receive Date: 20130805
  Receipt Date: 20130805
  Transmission Date: 20140515
  Serious: Yes (Life-Threatening, Hospitalization)
  Sender: FDA-Public Use
  Company Number: IMP_06762_2013

PATIENT
  Sex: 0

DRUGS (1)
  1. CARBIDOPA-LEVODOPA-B [Suspect]
     Indication: PARKINSON^S DISEASE
     Dosage: VIA A JEJUNAL EXTENSION PERCUTANEOUS ENDOSCOPIC GSTROSTOMY TUBE

REACTIONS (1)
  - Gastropleural fistula [None]
